FAERS Safety Report 9856936 (Version 4)
Quarter: 2014Q4

REPORT INFORMATION
  Report Type: Spontaneous
  Country: US (occurrence: US)
  Receive Date: 20140130
  Receipt Date: 20141120
  Transmission Date: 20150529
  Serious: Yes (Hospitalization, Other)
  Sender: FDA-Public Use
  Company Number: US-009507513-1401USA013642

PATIENT
  Sex: Male
  Weight: 113.6 kg

DRUGS (2)
  1. JANUVIA [Suspect]
     Active Substance: SITAGLIPTIN PHOSPHATE
     Indication: TYPE 2 DIABETES MELLITUS
     Dosage: UNK UNK, BID
     Route: 048
     Dates: start: 2006, end: 20120617
  2. JANUVIA [Suspect]
     Active Substance: SITAGLIPTIN PHOSPHATE
     Dosage: 100 MG, UNK
     Route: 048
     Dates: start: 20081207, end: 20120617

REACTIONS (38)
  - Intestinal obstruction [Unknown]
  - Seizure [Unknown]
  - Lung operation [Unknown]
  - Gastrointestinal haemorrhage [Unknown]
  - Hyperglycaemia [Unknown]
  - Appendicectomy [Unknown]
  - Actinic keratosis [Unknown]
  - Chronic kidney disease [Not Recovered/Not Resolved]
  - Pulmonary hilum mass [Unknown]
  - Anaemia [Unknown]
  - Oedema peripheral [Unknown]
  - Anaemia [Unknown]
  - Bradycardia [Unknown]
  - Prostatomegaly [Unknown]
  - Oedema peripheral [Unknown]
  - Tremor [Unknown]
  - Therapeutic response decreased [Unknown]
  - Pancreatic carcinoma metastatic [Unknown]
  - Cerebrovascular accident [Unknown]
  - Metastases to lung [Unknown]
  - Skin cancer [Unknown]
  - Radiotherapy [Unknown]
  - Noninfective sialoadenitis [Unknown]
  - Inguinal hernia repair [Unknown]
  - Hyperlipidaemia [Unknown]
  - Metastases to liver [Unknown]
  - Inflammation [Unknown]
  - Pulmonary mass [Unknown]
  - Hypertension [Unknown]
  - Metastases to lymph nodes [Unknown]
  - Gastrointestinal haemorrhage [Unknown]
  - Oedema peripheral [Unknown]
  - Pancreaticoduodenectomy [Unknown]
  - Cancer surgery [Unknown]
  - Knee arthroplasty [Unknown]
  - Squamous cell carcinoma [Unknown]
  - Rotator cuff repair [Unknown]
  - Coccidioidomycosis [Unknown]

NARRATIVE: CASE EVENT DATE: 20100915
